FAERS Safety Report 24799594 (Version 3)
Quarter: 2025Q3

REPORT INFORMATION
  Report Type: Spontaneous
  Country: CN (occurrence: CN)
  Receive Date: 20250102
  Receipt Date: 20250710
  Transmission Date: 20251020
  Serious: Yes (Hospitalization)
  Sender: BAYER HEALTHCARE PHARMACEUTICALS INC.
  Company Number: CN-BAYER-2024A184229

PATIENT
  Age: 32 Year
  Sex: Female
  Weight: 35 kg

DRUGS (2)
  1. ADEMPAS [Suspect]
     Active Substance: RIOCIGUAT
     Indication: Pulmonary arterial hypertension
     Dosage: 2.5 MG, TID
     Route: 048
     Dates: start: 20240201, end: 20250627
  2. SELEXIPAG [Suspect]
     Active Substance: SELEXIPAG
     Indication: Pulmonary arterial hypertension
     Dosage: 1.6 MG, BID
     Route: 048
     Dates: start: 20230401, end: 20250627

REACTIONS (6)
  - Diarrhoea infectious [Recovering/Resolving]
  - Myalgia [None]
  - Bacterial test positive [None]
  - Fungal test positive [None]
  - Increased dose administered [None]
  - Product prescribing issue [None]

NARRATIVE: CASE EVENT DATE: 20240201
